FAERS Safety Report 7569140-2 (Version None)
Quarter: 2011Q2

REPORT INFORMATION
  Report Type: 
  Country: None (occurrence: None)
  Receive Date: 20110623
  Receipt Date: 20110615
  Transmission Date: 20111010
  Serious: Yes (Death, Other)
  Sender: FDA-Public Use
  Company Number: JP-AMGEN-JPNCT2011031993

PATIENT
  Age: 76 Year
  Sex: Female
  Weight: 34 kg

DRUGS (15)
  1. PANITUMUMAB [Suspect]
     Indication: COLORECTAL CANCER
     Dosage: 6 MG/KG, Q2WK
     Route: 041
     Dates: start: 20100922, end: 20100922
  2. HIRUDOID [Concomitant]
     Dosage: UNK
     Route: 062
  3. MYSER [Concomitant]
     Dosage: UNK
     Route: 062
  4. DEXAMETHASONE SODIUM PHOSPHATE [Concomitant]
     Dosage: UNK
     Route: 042
  5. GRANISETRON [Concomitant]
     Dosage: UNK
     Route: 042
  6. MAGNESIUM SULFATE [Concomitant]
     Dosage: UNK
     Route: 048
  7. ALLOPURINOL [Concomitant]
     Dosage: UNK
     Route: 062
  8. ALDACTONE [Concomitant]
     Dosage: UNK
     Route: 048
  9. PANITUMUMAB [Suspect]
     Dosage: 6 MG/KG, Q2WK
     Route: 041
     Dates: start: 20101020, end: 20110316
  10. LASIX [Concomitant]
     Dosage: UNK
     Route: 048
  11. IRINOTECAN HCL [Suspect]
     Indication: COLORECTAL CANCER
     Route: 041
     Dates: start: 20100922, end: 20101222
  12. ERBITUX [Suspect]
     Indication: COLORECTAL CANCER
     Dosage: UNK UNK, Q6MO
     Route: 041
     Dates: start: 20090801, end: 20100901
  13. SAIREI-TO [Concomitant]
     Dosage: UNK
     Route: 048
  14. KINDAVATE [Concomitant]
     Dosage: UNK
     Route: 062
  15. CORTICOSTEROIDS [Concomitant]
     Indication: PROPHYLAXIS
     Dosage: UNK
     Route: 065

REACTIONS (3)
  - COLORECTAL CANCER [None]
  - NEUTROPHIL COUNT DECREASED [None]
  - HYPOMAGNESAEMIA [None]
